FAERS Safety Report 24598442 (Version 1)
Quarter: 2024Q4

REPORT INFORMATION
  Report Type: Spontaneous
  Country: US (occurrence: US)
  Receive Date: 20241110
  Receipt Date: 20241110
  Transmission Date: 20250115
  Serious: No
  Sender: SANOFI AVENTIS
  Company Number: US-SA-2024SA318106

PATIENT
  Sex: Male

DRUGS (2)
  1. ALPROLIX [Suspect]
     Active Substance: EFTRENONACOG ALFA
     Indication: Factor IX deficiency
     Dosage: 10000(8000+2000)  IU, Q3D
     Route: 042
     Dates: start: 201903
  2. ALPROLIX [Suspect]
     Active Substance: EFTRENONACOG ALFA
     Indication: Factor IX deficiency
     Dosage: 10000(8000+2000)  IU, Q3D
     Route: 042
     Dates: start: 201903

REACTIONS (2)
  - Cough [Unknown]
  - Weight decreased [Unknown]
